FAERS Safety Report 25193184 (Version 2)
Quarter: 2025Q2

REPORT INFORMATION
  Report Type: Report from Study
  Country: CA (occurrence: CA)
  Receive Date: 20250414
  Receipt Date: 20250603
  Transmission Date: 20250716
  Serious: Yes (Hospitalization, Other)
  Sender: UCB
  Company Number: CA-UCBSA-2025020976

PATIENT
  Age: 71 Year
  Sex: Female

DRUGS (2)
  1. CERTOLIZUMAB PEGOL [Suspect]
     Active Substance: CERTOLIZUMAB PEGOL
     Indication: Rheumatoid arthritis
     Dosage: 400 MILLIGRAM, EV 2 WEEKS(QOW)
     Route: 058
     Dates: start: 20240216
  2. CERTOLIZUMAB PEGOL [Suspect]
     Active Substance: CERTOLIZUMAB PEGOL
     Dosage: 200 MILLIGRAM, EV 2 WEEKS(QOW)
     Route: 058
     Dates: start: 2024, end: 202412

REACTIONS (4)
  - Cardiac failure [Not Recovered/Not Resolved]
  - Coma [Not Recovered/Not Resolved]
  - Fall [Unknown]
  - Foot fracture [Unknown]

NARRATIVE: CASE EVENT DATE: 20241224
